FAERS Safety Report 25435742 (Version 4)
Quarter: 2025Q3

REPORT INFORMATION
  Report Type: Report from Study
  Country: CO (occurrence: CO)
  Receive Date: 20250613
  Receipt Date: 20250822
  Transmission Date: 20251020
  Serious: Yes (Hospitalization)
  Sender: ELI LILLY AND COMPANY
  Company Number: CO-ELI_LILLY_AND_COMPANY-CO202506005422

PATIENT
  Age: 49 Year
  Sex: Female

DRUGS (1)
  1. TALTZ [Suspect]
     Active Substance: IXEKIZUMAB
     Indication: Psoriasis
     Route: 058
     Dates: start: 20241028, end: 20250423

REACTIONS (10)
  - Pneumonia bacterial [Not Recovered/Not Resolved]
  - Pleural effusion [Not Recovered/Not Resolved]
  - Vitamin D decreased [Recovered/Resolved]
  - Pulmonary mass [Not Recovered/Not Resolved]
  - Cardiomegaly [Not Recovered/Not Resolved]
  - Back pain [Not Recovered/Not Resolved]
  - Urinary tract infection [Not Recovered/Not Resolved]
  - Throat tightness [Not Recovered/Not Resolved]
  - Parosmia [Not Recovered/Not Resolved]
  - Peripheral swelling [Not Recovered/Not Resolved]

NARRATIVE: CASE EVENT DATE: 20250526
